FAERS Safety Report 9691766 (Version 1)
Quarter: 2013Q4

REPORT INFORMATION
  Report Type: Spontaneous
  Country: CA (occurrence: CA)
  Receive Date: 20131115
  Receipt Date: 20131115
  Transmission Date: 20140711
  Serious: Yes (Other)
  Sender: FDA-Public Use
  Company Number: CA-B.I. PHARMACEUTICALS,INC./RIDGEFIELD-2013-BI-37456CN

PATIENT
  Sex: 0

DRUGS (1)
  1. LINAGLIPTIN [Suspect]

REACTIONS (1)
  - Neoplasm malignant [Unknown]
